FAERS Safety Report 10391008 (Version 1)
Quarter: 2014Q3

REPORT INFORMATION
  Report Type: Spontaneous
  Country: ZA (occurrence: ZA)
  Receive Date: 20140818
  Receipt Date: 20140818
  Transmission Date: 20150326
  Serious: Yes (Hospitalization, Other)
  Sender: FDA-Public Use
  Company Number: ZA-PFIZER INC-2014227396

PATIENT
  Age: 52 Year
  Sex: Male

DRUGS (3)
  1. ACCUMAX [Suspect]
     Active Substance: QUINAPRIL HYDROCHLORIDE
     Indication: HYPERTENSION
     Dosage: 10 MG, 1X/DAY
     Dates: start: 2014
  2. ACCUMAX [Suspect]
     Active Substance: QUINAPRIL HYDROCHLORIDE
     Dosage: 10 MG, 2X/DAY
  3. ASPAVOR [Suspect]
     Active Substance: ATORVASTATIN
     Dosage: 10 MG, 2X/DAY
     Route: 048
     Dates: start: 201408, end: 201408

REACTIONS (9)
  - Product packaging confusion [Unknown]
  - Blindness transient [Recovered/Resolved]
  - Drug ineffective [Recovered/Resolved]
  - Drug dispensing error [Recovered/Resolved]
  - Blood pressure increased [Recovered/Resolved]
  - Sensory loss [Recovered/Resolved]
  - Wrong drug administered [Recovered/Resolved]
  - Heart rate increased [Recovered/Resolved]
  - Fatigue [Not Recovered/Not Resolved]

NARRATIVE: CASE EVENT DATE: 2014
